FAERS Safety Report 12377860 (Version 1)
Quarter: 2016Q2

REPORT INFORMATION
  Report Type: Spontaneous
  Country: US (occurrence: US)
  Receive Date: 20160517
  Receipt Date: 20160517
  Transmission Date: 20160815
  Serious: No
  Sender: FDA-Public Use
  Company Number: US-JNJFOC-20160416080

PATIENT
  Sex: Female
  Weight: 56.25 kg

DRUGS (1)
  1. TYLENOL EXTRA STRENGTH [Suspect]
     Active Substance: ACETAMINOPHEN
     Indication: PRODUCT USED FOR UNKNOWN INDICATION
     Dosage: 2 CAPLETS IN THE MORNING AT 4 AM AND 2 CAPLETS AT 6AM
     Route: 048
     Dates: start: 20160415

REACTIONS (1)
  - Extra dose administered [Unknown]
